FAERS Safety Report 12212807 (Version 5)
Quarter: 2016Q2

REPORT INFORMATION
  Report Type: Spontaneous
  Country: IE (occurrence: IE)
  Receive Date: 20160328
  Receipt Date: 20160620
  Transmission Date: 20160815
  Serious: Yes (Hospitalization)
  Sender: FDA-Public Use
  Company Number: IE-PFIZER INC-2016147481

PATIENT
  Age: 34 Year
  Sex: Female

DRUGS (2)
  1. INLYTA [Suspect]
     Active Substance: AXITINIB
     Indication: METASTATIC RENAL CELL CARCINOMA
     Dosage: 5 MG, UNK
  2. INLYTA [Suspect]
     Active Substance: AXITINIB
     Dosage: 7 MG, UNK

REACTIONS (10)
  - Arthritis [Unknown]
  - Stomatitis [Unknown]
  - Weight increased [Unknown]
  - Disease progression [Unknown]
  - Vomiting [Unknown]
  - Metastatic renal cell carcinoma [Unknown]
  - Pain [Unknown]
  - Constipation [Unknown]
  - Ovarian cyst [Unknown]
  - Infection [Unknown]
